FAERS Safety Report 10196190 (Version 1)
Quarter: 2014Q2

REPORT INFORMATION
  Report Type: Other
  Country: GB (occurrence: GB)
  Receive Date: 20140527
  Receipt Date: 20140527
  Transmission Date: 20141212
  Serious: Yes (Life-Threatening, Hospitalization)
  Sender: FDA-Public Use
  Company Number: GB-TARO PHARMACEUTICALS U.S.A., INC-2014SUN01120

PATIENT
  Age: 86 Year
  Sex: Male

DRUGS (9)
  1. WARFARIN [Suspect]
     Indication: ATRIAL FIBRILLATION
     Dosage: UNK
     Route: 048
     Dates: start: 20140414, end: 20140430
  2. GAVISCON ADVANCE [Concomitant]
     Dosage: 10 ML, QID
     Route: 048
  3. RAMIPRIL [Concomitant]
     Dosage: 1.25 MG, OD
     Route: 048
  4. LANSOPRAZOLE [Concomitant]
     Dosage: 30 MG, OD (IN THE MORNING)
     Route: 048
  5. ZOMORPH [Concomitant]
     Dosage: 10 MG, BID
     Route: 048
  6. ACETYLCYSTEINE [Concomitant]
     Indication: PULMONARY FIBROSIS
     Dosage: 600 MG, TID
     Route: 048
  7. DOMPERIDONE [Concomitant]
     Dosage: 10 MG, TID
     Route: 048
  8. LACTULOSE [Concomitant]
     Dosage: 10 ML, BID
     Route: 048
  9. IPRATROPIUM BROMIDE [Concomitant]
     Dosage: 21MCG/SPRAY, TWO DOSES EACH NOSTRIL
     Route: 045

REACTIONS (3)
  - Pulmonary fibrosis [Unknown]
  - Condition aggravated [Unknown]
  - Dyspnoea [Unknown]
